FAERS Safety Report 5914897-7 (Version None)
Quarter: 2008Q4

REPORT INFORMATION
  Report Type: 
  Country: None (occurrence: None)
  Receive Date: 20081010
  Receipt Date: 20081006
  Transmission Date: 20090506
  Serious: Yes (Life-Threatening, Hospitalization)
  Sender: FDA-Public Use
  Company Number: PHHY2008FR23808

PATIENT
  Sex: Female
  Weight: 45 kg

DRUGS (6)
  1. NEORAL [Suspect]
     Indication: LIVER TRANSPLANT
     Dosage: 50 MG, BID
     Route: 048
  2. KARDEGIC [Suspect]
     Dosage: 1 DF, PRN
     Route: 048
     Dates: start: 20080701, end: 20080801
  3. GINKGO BILOBA [Suspect]
     Dosage: 3 DF, BID
     Dates: start: 20080101, end: 20080801
  4. LOXEN [Concomitant]
  5. OROCAL D3 [Concomitant]
  6. ASCORBIC ACID [Concomitant]
     Dosage: 500 MG PER DAY

REACTIONS (5)
  - BLOOD BLISTER [None]
  - SPLENOMEGALY [None]
  - SPONTANEOUS HAEMATOMA [None]
  - THROMBOCYTOPENIA [None]
  - THROMBOCYTOPENIC PURPURA [None]
